FAERS Safety Report 5381144-7 (Version None)
Quarter: 2007Q3

REPORT INFORMATION
  Report Type: 
  Country: None (occurrence: None)
  Receive Date: 20070706
  Receipt Date: 20070627
  Transmission Date: 20080115
  Serious: Yes (Hospitalization)
  Sender: FDA-Public Use
  Company Number: ES-PFIZER INC-2007047152

PATIENT
  Age: 71 Year
  Sex: Male

DRUGS (11)
  1. ALDACTONE [Suspect]
     Indication: HYPERTENSION
     Route: 048
     Dates: start: 20060616, end: 20061122
  2. ACOVIL [Interacting]
     Indication: HYPERTENSIVE HEART DISEASE
     Route: 048
  3. ANTIINFLAMMATORY/ANTIRHEUMATIC NON-STEROIDS [Interacting]
     Indication: ARTHRALGIA
     Route: 048
  4. AMOXICILLIN + CLAVULANATE POTASSIUM [Concomitant]
     Dosage: DAILY DOSE:1.5GRAM-FREQ:DAILY (ONLY TOOK 4 DOSES)
     Route: 048
  5. DIANBEN [Concomitant]
     Indication: DIABETES MELLITUS
     Dosage: DAILY DOSE:1650MG-FREQ:DAILY
     Route: 048
  6. ATACAND [Concomitant]
     Indication: HYPERTENSIVE HEART DISEASE
     Route: 048
  7. COROPRES [Concomitant]
     Dosage: DAILY DOSE:12MG-FREQ:DAILY
     Route: 048
  8. DIGOXIN [Concomitant]
     Indication: ATRIAL FIBRILLATION
  9. SINTROM [Concomitant]
     Indication: ATRIAL FIBRILLATION
     Route: 048
  10. LIPEMOL [Concomitant]
     Indication: LIPID METABOLISM DISORDER
     Dosage: DAILY DOSE:20MG-FREQ:DAILY
     Route: 048
  11. SPIRIVA [Concomitant]
     Indication: CHRONIC OBSTRUCTIVE PULMONARY DISEASE
     Dosage: DAILY DOSE:18MCG-FREQ:DAILY
     Route: 055

REACTIONS (3)
  - DRUG INTERACTION [None]
  - HYPERKALAEMIA [None]
  - RENAL FAILURE ACUTE [None]
